FAERS Safety Report 22291787 (Version 1)
Quarter: 2023Q2

REPORT INFORMATION
  Report Type: Other
  Country: GB (occurrence: None)
  Receive Date: 20230507
  Receipt Date: 20230507
  Transmission Date: 20230722
  Serious: Yes (Hospitalization, Other)
  Sender: FDA-Public Use
  Company Number: GB-ROCHE-2167970

PATIENT
  Sex: Female

DRUGS (1)
  1. TOCILIZUMAB [Suspect]
     Active Substance: TOCILIZUMAB
     Indication: Rheumatoid arthritis
     Route: 058
     Dates: start: 20171107

REACTIONS (6)
  - Upper limb fracture [Unknown]
  - Limb injury [Unknown]
  - Upper limb fracture [Unknown]
  - Joint noise [Unknown]
  - Nasopharyngitis [Unknown]
  - Malaise [Unknown]
